FAERS Safety Report 21898219 (Version 1)
Quarter: 2023Q1

REPORT INFORMATION
  Report Type: Spontaneous
  Country: US (occurrence: US)
  Receive Date: 20230123
  Receipt Date: 20230123
  Transmission Date: 20230417
  Serious: No
  Sender: FDA-Public Use
  Company Number: US-BAYER-2023A004529

PATIENT
  Age: 4 Month
  Sex: Male

DRUGS (5)
  1. ADEMPAS [Suspect]
     Active Substance: RIOCIGUAT
     Indication: Pulmonary hypertension
     Dosage: UNK
  2. NITRIC OXIDE [Concomitant]
     Active Substance: NITRIC OXIDE
     Dosage: UNK
  3. SILDENAFIL [Concomitant]
     Active Substance: SILDENAFIL
     Dosage: UNK
  4. BOSENTAN [Concomitant]
     Active Substance: BOSENTAN
     Dosage: UNK
  5. TREPROSTINIL [Concomitant]
     Active Substance: TREPROSTINIL
     Dosage: UNK

REACTIONS (2)
  - Off label use [None]
  - Contraindicated product administered [None]
